FAERS Safety Report 13023924 (Version 2)
Quarter: 2017Q1

REPORT INFORMATION
  Report Type: Report from Study
  Country: None (occurrence: FI)
  Receive Date: 20161213
  Receipt Date: 20170105
  Transmission Date: 20170428
  Serious: Yes (Hospitalization)
  Sender: FDA-Public Use
  Company Number: FI-ABBVIE-16P-055-1546109-00

PATIENT
  Age: 59 Year
  Sex: Female

DRUGS (11)
  1. PROPRAL [Concomitant]
     Indication: ARRHYTHMIA
  2. DUODOPA [Suspect]
     Active Substance: CARBIDOPA\LEVODOPA
     Indication: PARKINSON^S DISEASE
     Route: 050
     Dates: start: 201512, end: 20151207
  3. HYDROCORTISONE. [Concomitant]
     Active Substance: HYDROCORTISONE
     Indication: HYPOPITUITARISM
     Dosage: 1.5 + 0.5
  4. MAGNESIUM [Concomitant]
     Active Substance: MAGNESIUM
     Indication: PRODUCT USED FOR UNKNOWN INDICATION
     Dosage: 375 MG + B6 VITAMIN
  5. AZILECT [Concomitant]
     Active Substance: RASAGILINE MESYLATE
     Indication: PARKINSON^S DISEASE
     Dosage: IN THE MORNINGS
  6. DUODOPA [Suspect]
     Active Substance: CARBIDOPA\LEVODOPA
     Dosage: MD 8ML; CD 3.4ML; ED 1ML
     Route: 050
     Dates: start: 20160127, end: 20160204
  7. MADOPAR [Concomitant]
     Active Substance: BENSERAZIDE HYDROCHLORIDE\LEVODOPA
     Indication: PARKINSON^S DISEASE
     Dosage: 100/25 MG, 8-12 TABLETS A DAY, TAKEN EVERY 2 HOURS STARTING IN THE MORNING
  8. DUODOPA [Suspect]
     Active Substance: CARBIDOPA\LEVODOPA
     Dosage: MD 8ML; CD 3.2ML; ED 1ML.  16 HOUR TREATMENT
     Route: 050
     Dates: start: 20151207, end: 20160127
  9. AMANTADINE [Concomitant]
     Active Substance: AMANTADINE
     Indication: PARKINSON^S DISEASE
     Dosage: EVERY MORNING AND EVENING
  10. DEVISOL [Concomitant]
     Indication: PRODUCT USED FOR UNKNOWN INDICATION
     Dosage: 1-2 TABETS
  11. KELASIN SE [Concomitant]
     Indication: PRODUCT USED FOR UNKNOWN INDICATION

REACTIONS (25)
  - Speech disorder [Unknown]
  - Frustration tolerance decreased [Unknown]
  - Muscle rigidity [Unknown]
  - Drug ineffective [Unknown]
  - Parkinsonism [Not Recovered/Not Resolved]
  - Gait disturbance [Unknown]
  - Abdominal pain upper [Unknown]
  - Drug administered at inappropriate site [Not Recovered/Not Resolved]
  - Underdose [Unknown]
  - Mobility decreased [Unknown]
  - Musculoskeletal stiffness [Unknown]
  - Activities of daily living impaired [Unknown]
  - Dysarthria [Unknown]
  - Incorrect dose administered [Unknown]
  - General physical health deterioration [Not Recovered/Not Resolved]
  - Activities of daily living impaired [Unknown]
  - Pain [Unknown]
  - Drug ineffective [Unknown]
  - Pain [Unknown]
  - Muscle rigidity [Not Recovered/Not Resolved]
  - Device dislocation [Unknown]
  - Extra dose administered [Unknown]
  - Malaise [Unknown]
  - Dyskinesia [Not Recovered/Not Resolved]
  - Device occlusion [Unknown]

NARRATIVE: CASE EVENT DATE: 201512
